FAERS Safety Report 9328641 (Version 1)
Quarter: 2013Q2

REPORT INFORMATION
  Report Type: Spontaneous
  Country: US (occurrence: US)
  Receive Date: 20130604
  Receipt Date: 20130604
  Transmission Date: 20140414
  Serious: No
  Sender: FDA-Public Use
  Company Number: US-SANOFI-AVENTIS-2012SA062222

PATIENT
  Age: 60 Year
  Sex: Male
  Weight: 91 kg

DRUGS (4)
  1. SOLOSTAR [Suspect]
     Dates: start: 201208
  2. LANTUS SOLOSTAR [Suspect]
     Dosage: DOSE:34 UNIT(S)
     Route: 058
     Dates: start: 201208
  3. METFORMIN [Concomitant]
  4. NOVOLOG [Concomitant]

REACTIONS (1)
  - Injury associated with device [Unknown]
